FAERS Safety Report 11651871 (Version 1)
Quarter: 2015Q4

REPORT INFORMATION
  Report Type: Spontaneous
  Country: US (occurrence: US)
  Receive Date: 20151022
  Receipt Date: 20151022
  Transmission Date: 20160304
  Serious: Yes (Other)
  Sender: FDA-Public Use
  Company Number: US-ACTAVIS-2015-14704

PATIENT
  Sex: Male

DRUGS (1)
  1. BICALUTAMIDE (ATLLC) [Suspect]
     Active Substance: BICALUTAMIDE
     Indication: PROSTATE CANCER
     Dosage: UNK, UNKNOWN
     Route: 048

REACTIONS (5)
  - Hot flush [Recovered/Resolved]
  - Feeling cold [Recovered/Resolved]
  - Haematochezia [Recovered/Resolved]
  - Back pain [Recovered/Resolved]
  - Headache [Recovered/Resolved]
